FAERS Safety Report 14632488 (Version 1)
Quarter: 2018Q1

REPORT INFORMATION
  Report Type: Spontaneous
  Country: FR (occurrence: FR)
  Receive Date: 20180313
  Receipt Date: 20180313
  Transmission Date: 20180509
  Serious: Yes (Hospitalization)
  Sender: FDA-Public Use
  Company Number: FR-LEADIANT BIOSCIENCES INC-2018STPI000114

PATIENT
  Age: 75 Year
  Sex: Male
  Weight: 70 kg

DRUGS (14)
  1. METHOTREXATE MYLAN [Suspect]
     Active Substance: METHOTREXATE SODIUM
     Indication: LYMPHOMA
     Dosage: 6325 MG, UNK
     Route: 042
     Dates: start: 20171122, end: 20171122
  2. REPAGLINIDE. [Concomitant]
     Active Substance: REPAGLINIDE
  3. INNOHEP [Suspect]
     Active Substance: TINZAPARIN SODIUM
     Indication: THROMBOSIS PROPHYLAXIS
     Dosage: 1200 IU, QD
     Route: 058
     Dates: start: 20171123, end: 20171123
  4. PREDNISONE. [Concomitant]
     Active Substance: PREDNISONE
  5. TRIMEBUTINE [Concomitant]
     Active Substance: TRIMEBUTINE
  6. SULFARLEM [Concomitant]
     Active Substance: ANETHOLTRITHION
  7. INSULATARD                         /00646002/ [Suspect]
     Active Substance: INSULIN HUMAN
     Indication: DIABETES MELLITUS
     Dosage: 18 IU, QD
     Route: 058
     Dates: start: 20171121, end: 20171123
  8. RANITIDINE. [Concomitant]
     Active Substance: RANITIDINE
  9. MATULANE [Suspect]
     Active Substance: PROCARBAZINE HYDROCHLORIDE
     Indication: HODGKIN^S DISEASE
  10. NATULAN [Suspect]
     Active Substance: PROCARBAZINE HYDROCHLORIDE
     Indication: LYMPHOMA
     Dosage: 200 MG, QD
     Route: 048
     Dates: start: 20171121, end: 20171123
  11. TOVIAZ [Suspect]
     Active Substance: FESOTERODINE FUMARATE
     Indication: POLLAKIURIA
     Dosage: UNK
     Route: 048
     Dates: end: 20171123
  12. VALACICLOVIR [Suspect]
     Active Substance: VALACYCLOVIR HYDROCHLORIDE
     Indication: INFECTION PROPHYLAXIS
     Dosage: 500 MG, QD
     Route: 048
     Dates: start: 20171121, end: 20171123
  13. PARACETAMOL [Concomitant]
     Active Substance: ACETAMINOPHEN
  14. SINEMET [Concomitant]
     Active Substance: CARBIDOPA\LEVODOPA

REACTIONS (2)
  - Anuria [Recovered/Resolved]
  - Acute kidney injury [Recovering/Resolving]

NARRATIVE: CASE EVENT DATE: 20171123
